FAERS Safety Report 12795430 (Version 1)
Quarter: 2016Q3

REPORT INFORMATION
  Report Type: Report from Study
  Country: US (occurrence: US)
  Receive Date: 20160929
  Receipt Date: 20160929
  Transmission Date: 20161109
  Serious: Yes (Other)
  Sender: FDA-Public Use
  Company Number: US-JNJFOC-20160924860

PATIENT
  Age: 63 Year
  Sex: Male
  Weight: 95.26 kg

DRUGS (3)
  1. METFORMIN [Concomitant]
     Active Substance: METFORMIN HYDROCHLORIDE
     Route: 065
  2. INSULIN [Concomitant]
     Active Substance: INSULIN NOS
     Route: 065
  3. INVOKANA [Suspect]
     Active Substance: CANAGLIFLOZIN
     Indication: TYPE 2 DIABETES MELLITUS
     Route: 048
     Dates: start: 201501, end: 201606

REACTIONS (3)
  - Creatinine renal clearance decreased [Unknown]
  - Urine albumin/creatinine ratio abnormal [Unknown]
  - Albumin urine present [Unknown]

NARRATIVE: CASE EVENT DATE: 201601
